FAERS Safety Report 5320076-7 (Version None)
Quarter: 2007Q2

REPORT INFORMATION
  Report Type: 
  Country: None (occurrence: None)
  Receive Date: 20070503
  Receipt Date: 20070420
  Transmission Date: 20071010
  Serious: Yes (Other)
  Sender: FDA-Public Use
  Company Number: 233160K07USA

PATIENT
  Age: 43 Year
  Sex: Female

DRUGS (6)
  1. REBIF [Suspect]
     Indication: MULTIPLE SCLEROSIS
     Dosage: 44 MCG, 3 IN 1 WEEKS, SUBCUTANEOUS
     Route: 058
     Dates: start: 20040901, end: 20060420
  2. SYNTHROID [Concomitant]
  3. PROVIGIL [Concomitant]
  4. AMANTADINE (AMANTADINE /00055901/) [Concomitant]
  5. DETROL LA [Concomitant]
  6. MENTAX (BUTENAFINE HYDROCHLORIDE) [Concomitant]

REACTIONS (3)
  - CERVIX CARCINOMA [None]
  - METASTASES TO FALLOPIAN TUBE [None]
  - METASTASES TO UTERUS [None]
